FAERS Safety Report 7527287-0 (Version None)
Quarter: 2011Q2

REPORT INFORMATION
  Report Type: 
  Country: None (occurrence: None)
  Receive Date: 20110603
  Receipt Date: 20110603
  Transmission Date: 20111010
  Serious: Yes (Other)
  Sender: FDA-Public Use
  Company Number: None

PATIENT
  Sex: Male
  Weight: 90.7194 kg

DRUGS (2)
  1. CRESTOR [Suspect]
     Indication: BLOOD CHOLESTEROL ABNORMAL
     Dosage: 5 MG. 3 TIMES / WEEK. 2 YEARS OFF + ON
  2. ZOCOR [Suspect]

REACTIONS (3)
  - PAIN [None]
  - ASTHENIA [None]
  - MYALGIA [None]
